FAERS Safety Report 5840217-2 (Version None)
Quarter: 2008Q3

REPORT INFORMATION
  Report Type: 
  Country: None (occurrence: None)
  Receive Date: 20080811
  Receipt Date: 20080730
  Transmission Date: 20090109
  Serious: Yes (Life-Threatening)
  Sender: FDA-Public Use
  Company Number: US-ROCHE-578389

PATIENT
  Sex: Male
  Weight: 59 kg

DRUGS (9)
  1. BONIVA [Suspect]
     Indication: OSTEOPENIA
     Dosage: DOSING AMOUNT REPORTED AS: 30 MG/3ML.
     Route: 042
     Dates: start: 20080729, end: 20080729
  2. CRESTOR [Concomitant]
     Dosage: DRUG REPORTED AS: CRESTOR 20, TAKEN EVERYDAY.
     Route: 048
     Dates: start: 20071211
  3. SULAR [Concomitant]
     Indication: HYPERTENSION
     Dosage: DRUG REPORTED AS: SULAR 20, TAKEN EVERYDAY. START DATE REPORTED AS: YEARS.
     Route: 048
  4. AGGRENOX [Concomitant]
     Dosage: START DATE REPORTED AS: YEARS.
     Route: 048
  5. NEXIUM [Concomitant]
     Dosage: DRUG REPORTED AS: NEXIUM 40. TAKEN EVERYDAY. START DATE REPORTED AS: YEARS.
     Route: 048
  6. SPIRIVA [Concomitant]
     Dosage: TAKEN EVERYDAY.
  7. ALBUTEROL [Concomitant]
     Dosage: PRN.
  8. ZETIA [Concomitant]
     Dosage: START DATE REPORTED AS: YEARS.
     Route: 048
  9. ADVAIR DISKUS 100/50 [Concomitant]

REACTIONS (1)
  - ANAPHYLACTIC SHOCK [None]
